FAERS Safety Report 8340606-0 (Version None)
Quarter: 2012Q2

REPORT INFORMATION
  Report Type: 
  Country: None (occurrence: None)
  Receive Date: 20120507
  Receipt Date: 20120430
  Transmission Date: 20120825
  Serious: Yes (Other)
  Sender: FDA-Public Use
  Company Number: US-ROCHE-1064313

PATIENT
  Sex: Female

DRUGS (6)
  1. ACTONEL [Suspect]
     Indication: OSTEOPOROSIS
     Dates: start: 20040601, end: 20041201
  2. FOSAMAX [Suspect]
     Indication: OSTEOPOROSIS
     Dates: start: 20000101, end: 20040601
  3. BONIVA [Suspect]
     Indication: OSTEOPOROSIS
     Dates: start: 20070301, end: 20101201
  4. FOSAMAX [Suspect]
     Indication: OSTEITIS DEFORMANS
     Dates: start: 20041201, end: 20070301
  5. ACTONEL [Suspect]
     Indication: OSTEITIS DEFORMANS
  6. BONIVA [Suspect]
     Indication: OSTEITIS DEFORMANS

REACTIONS (4)
  - FEMUR FRACTURE [None]
  - LOW TURNOVER OSTEOPATHY [None]
  - ANXIETY [None]
  - EMOTIONAL DISTRESS [None]
